FAERS Safety Report 12626499 (Version 7)
Quarter: 2018Q2

REPORT INFORMATION
  Report Type: Spontaneous
  Country: US (occurrence: US)
  Receive Date: 20160805
  Receipt Date: 20180406
  Transmission Date: 20180711
  Serious: Yes (Death, Other)
  Sender: FDA-Public Use
  Company Number: US-PFIZER INC-2016372951

PATIENT
  Age: 64 Year
  Sex: Female

DRUGS (4)
  1. TRAMADOL. [Concomitant]
     Active Substance: TRAMADOL
     Indication: BACK PAIN
     Dosage: 50 MG, AS NEEDED
  2. LYRICA [Suspect]
     Active Substance: PREGABALIN
     Indication: BACK PAIN
     Dosage: 300 MG, 2X/DAY
     Route: 048
     Dates: start: 2013, end: 201801
  3. ALPRAZOLAM. [Concomitant]
     Active Substance: ALPRAZOLAM
     Indication: ANXIETY
     Dosage: 0.5 MG, AS NEEDED
  4. ADVAIR HFA [Concomitant]
     Active Substance: FLUTICASONE PROPIONATE\SALMETEROL XINAFOATE
     Indication: ASTHMA
     Dosage: UNK UNK, 2X/DAY (1 PUFF)

REACTIONS (9)
  - Drug effect incomplete [Unknown]
  - Intentional product use issue [Unknown]
  - Drug dependence [Unknown]
  - Depression [Unknown]
  - Anxiety [Unknown]
  - Suicidal ideation [Unknown]
  - Hypoacusis [Not Recovered/Not Resolved]
  - Panic attack [Unknown]
  - Withdrawal syndrome [Unknown]
